FAERS Safety Report 20329101 (Version 1)
Quarter: 2022Q1

REPORT INFORMATION
  Report Type: Spontaneous
  Country: US (occurrence: US)
  Receive Date: 20220112
  Receipt Date: 20220112
  Transmission Date: 20220423
  Serious: Yes (Hospitalization)
  Sender: FDA-Public Use
  Company Number: US-CELGENE-USA-20220102230

PATIENT
  Age: 81 Year
  Sex: Female

DRUGS (26)
  1. AZACITIDINE [Suspect]
     Active Substance: AZACITIDINE
     Indication: Acute myeloid leukaemia
     Dosage: 120 MILLIGRAM
     Route: 058
     Dates: start: 20200226, end: 20200303
  2. AZACITIDINE [Suspect]
     Active Substance: AZACITIDINE
     Dosage: 120 MILLIGRAM
     Route: 058
     Dates: start: 20200325, end: 20200331
  3. AZACITIDINE [Suspect]
     Active Substance: AZACITIDINE
     Dosage: 120 MILLIGRAM
     Route: 058
     Dates: start: 20200422, end: 20200428
  4. AZACITIDINE [Suspect]
     Active Substance: AZACITIDINE
     Dosage: 120 MILLIGRAM
     Route: 058
     Dates: start: 20200520, end: 20200707
  5. AZACITIDINE [Suspect]
     Active Substance: AZACITIDINE
     Dosage: 120 MILLIGRAM
     Route: 058
     Dates: start: 20200729, end: 20200804
  6. AZACITIDINE [Suspect]
     Active Substance: AZACITIDINE
     Dosage: 120 MILLIGRAM
     Route: 058
     Dates: start: 20200826, end: 20200901
  7. AZACITIDINE [Suspect]
     Active Substance: AZACITIDINE
     Dosage: 120 MILLIGRAM
     Route: 058
     Dates: start: 20200923, end: 20200929
  8. AZACITIDINE [Suspect]
     Active Substance: AZACITIDINE
     Dosage: 120 MILLIGRAM
     Route: 058
     Dates: start: 20201021, end: 20201027
  9. AZACITIDINE [Suspect]
     Active Substance: AZACITIDINE
     Dosage: 120 MILLIGRAM
     Route: 058
     Dates: start: 20201118, end: 20201124
  10. AZACITIDINE [Suspect]
     Active Substance: AZACITIDINE
     Dosage: 120 MILLIGRAM
     Route: 058
     Dates: start: 20201216, end: 20210119
  11. AZACITIDINE [Suspect]
     Active Substance: AZACITIDINE
     Dosage: 120 MILLIGRAM
     Route: 058
     Dates: start: 20210217, end: 20210223
  12. AZACITIDINE [Suspect]
     Active Substance: AZACITIDINE
     Dosage: 120 MILLIGRAM
     Route: 058
     Dates: start: 20210317, end: 20210615
  13. AZACITIDINE [Suspect]
     Active Substance: AZACITIDINE
     Dosage: 120 MILLIGRAM
     Route: 058
     Dates: start: 20210707, end: 20210713
  14. AZACITIDINE [Suspect]
     Active Substance: AZACITIDINE
     Dosage: 120 MILLIGRAM
     Route: 058
     Dates: start: 20210804, end: 20211102
  15. AZACITIDINE [Suspect]
     Active Substance: AZACITIDINE
     Dosage: 120 MILLIGRAM
     Route: 058
     Dates: start: 20211124, end: 20211228
  16. IVOSIDENIB [Suspect]
     Active Substance: IVOSIDENIB
     Indication: Acute myeloid leukaemia
     Dosage: 500 MILLIGRAM
     Route: 048
     Dates: start: 20200226, end: 20210331
  17. IVOSIDENIB [Suspect]
     Active Substance: IVOSIDENIB
     Dosage: 500 MILLIGRAM
     Route: 048
     Dates: start: 20211007, end: 20211231
  18. IVOSIDENIB [Suspect]
     Active Substance: IVOSIDENIB
     Dosage: 500 MILLIGRAM
     Route: 048
     Dates: start: 20220103
  19. BENZONATATE [Concomitant]
     Active Substance: BENZONATATE
     Indication: Interstitial lung disease
     Dosage: 300 MILLIGRAM
     Route: 048
     Dates: start: 20200711
  20. HYDROCHLOROTHIAZIDE\VALSARTAN [Concomitant]
     Active Substance: HYDROCHLOROTHIAZIDE\VALSARTAN
     Indication: Hypertension
     Dosage: 1 TABLET
     Route: 048
     Dates: start: 20200929
  21. ASPIRIN [Concomitant]
     Active Substance: ASPIRIN
     Indication: Myocardial ischaemia
     Dosage: 100 MILLIGRAM
     Route: 048
     Dates: start: 20210114
  22. CADUET [Concomitant]
     Active Substance: AMLODIPINE BESYLATE\ATORVASTATIN CALCIUM
     Indication: Hypertension
     Dosage: .5 TABLET
     Route: 048
     Dates: start: 20210115
  23. GLIMEPIRIDE [Concomitant]
     Active Substance: GLIMEPIRIDE
     Indication: Type 2 diabetes mellitus
     Dosage: 4 MILLIGRAM
     Route: 048
     Dates: start: 20210120
  24. LORAZEPAM [Concomitant]
     Active Substance: LORAZEPAM
     Indication: Insomnia
     Dosage: .5 MILLIGRAM
     Route: 048
     Dates: start: 20210316
  25. VILDAGLIPTIN [Concomitant]
     Active Substance: VILDAGLIPTIN
     Indication: Interstitial lung disease
     Dosage: 2 TABLET
     Route: 048
     Dates: start: 20210902
  26. ALBUTEROL SULFATE [Concomitant]
     Active Substance: ALBUTEROL SULFATE
     Indication: Interstitial lung disease
     Dosage: 5 ML
     Route: 048
     Dates: start: 20211012

REACTIONS (2)
  - Febrile neutropenia [Recovered/Resolved]
  - Urinary tract infection [Recovered/Resolved]

NARRATIVE: CASE EVENT DATE: 20211231
